FAERS Safety Report 21777988 (Version 2)
Quarter: 2023Q2

REPORT INFORMATION
  Report Type: Spontaneous
  Country: CA (occurrence: CA)
  Receive Date: 20221226
  Receipt Date: 20230526
  Transmission Date: 20230722
  Serious: Yes (Other)
  Sender: FDA-Public Use
  Company Number: CA-MLMSERVICE-20221208-3970085-1

PATIENT
  Age: 7 Decade
  Sex: Female

DRUGS (1)
  1. METHOTREXATE [Suspect]
     Active Substance: METHOTREXATE
     Indication: Polyarteritis nodosa
     Dosage: INJECTION BP WITHOUT PRESERVATIVE (2 ML SINGLE USE VIALS)
     Route: 013

REACTIONS (2)
  - Non-alcoholic steatohepatitis [Unknown]
  - Off label use [Unknown]
